FAERS Safety Report 8382342-0 (Version None)
Quarter: 2012Q2

REPORT INFORMATION
  Report Type: 
  Country: None (occurrence: None)
  Receive Date: 20120524
  Receipt Date: 20120522
  Transmission Date: 20120825
  Serious: No
  Sender: FDA-Public Use
  Company Number: US-PFIZER INC-2012124920

PATIENT
  Sex: Female
  Weight: 111.6 kg

DRUGS (4)
  1. ATENOLOL [Concomitant]
     Indication: HYPERTENSION
     Dosage: 50 MG, 2X/DAY
  2. MICARDIS HCT [Concomitant]
     Indication: HYPERTENSION
     Dosage: 80/25 MG, DAILY
  3. NEURONTIN [Concomitant]
     Indication: PERIPHERAL SENSORY NEUROPATHY
     Dosage: 900 MG, 3X/DAY
  4. CELEBREX [Suspect]
     Indication: BACK DISORDER
     Dosage: 200 MG, 2X/DAY
     Route: 048

REACTIONS (2)
  - CHEST PAIN [None]
  - CONDITION AGGRAVATED [None]
